FAERS Safety Report 18589162 (Version 2)
Quarter: 2020Q4

REPORT INFORMATION
  Report Type: Spontaneous
  Country: BR (occurrence: BR)
  Receive Date: 20201208
  Receipt Date: 20201218
  Transmission Date: 20210114
  Serious: Yes (Other)
  Sender: FDA-Public Use
  Company Number: BR-GLAXOSMITHKLINE-BR2020242020

PATIENT
  Sex: Male
  Weight: 77 kg

DRUGS (1)
  1. NICORETTE [Suspect]
     Active Substance: NICOTINE
     Indication: ANXIETY
     Dosage: ONE GUM AT ONCE 10 GUMS A DAY, PRODUCT LAST USED DATE 30/NOV/2020
     Route: 048
     Dates: start: 201904, end: 202012

REACTIONS (3)
  - Product use in unapproved indication [Unknown]
  - Intentional product use issue [Recovered/Resolved]
  - Nicotine dependence [Recovered/Resolved]
